FAERS Safety Report 6538815-6 (Version None)
Quarter: 2010Q1

REPORT INFORMATION
  Report Type: 
  Country: None (occurrence: None)
  Receive Date: 20100112
  Receipt Date: 20100107
  Transmission Date: 20100710
  Serious: Yes (Life-Threatening, Hospitalization, Disabling)
  Sender: FDA-Public Use
  Company Number: 2010SP001671

PATIENT
  Sex: Female
  Weight: 74 kg

DRUGS (4)
  1. TEMODAL [Suspect]
     Indication: DRUG USE FOR UNKNOWN INDICATION
     Dosage: 175 MG;QD;PO
     Route: 048
     Dates: start: 20080612
  2. TEMODAL [Suspect]
     Indication: DRUG USE FOR UNKNOWN INDICATION
     Dosage: 175 MG;QD;PO
     Route: 048
     Dates: start: 20090521
  3. TEMODAL [Suspect]
  4. TEMODAL [Suspect]

REACTIONS (11)
  - ATAXIA [None]
  - BRAIN STEM ISCHAEMIA [None]
  - CEREBRAL ISCHAEMIA [None]
  - COORDINATION ABNORMAL [None]
  - FACIAL PALSY [None]
  - HEMIPARESIS [None]
  - HYPOGLOSSAL NERVE PARALYSIS [None]
  - IIIRD NERVE PARALYSIS [None]
  - MENINGITIS HERPES [None]
  - NEURALGIA [None]
  - SPEECH DISORDER [None]
